FAERS Safety Report 14182196 (Version 2)
Quarter: 2017Q4

REPORT INFORMATION
  Report Type: Spontaneous
  Country: JP (occurrence: JP)
  Receive Date: 20171113
  Receipt Date: 20171201
  Transmission Date: 20180321
  Serious: Yes (Death, Hospitalization)
  Sender: FDA-Public Use
  Company Number: JP-AMGEN-JPNSP2015057792

PATIENT
  Age: 77 Year
  Sex: Female
  Weight: 43 kg

DRUGS (10)
  1. CALONAL [Concomitant]
     Active Substance: ACETAMINOPHEN
     Indication: ANALGESIC THERAPY
     Dosage: 400 MG, AS NEEDED
     Route: 048
     Dates: start: 20150523
  2. CALONAL [Concomitant]
     Active Substance: ACETAMINOPHEN
     Dosage: 400 MG, TID
     Route: 048
     Dates: start: 20150527
  3. CALCIUM [Concomitant]
     Active Substance: CALCIUM
     Dosage: 18 MEQ, QD
  4. MAGNESIUM [Concomitant]
     Active Substance: MAGNESIUM
     Dosage: 30 MG, QD
  5. CALCIUM [Concomitant]
     Active Substance: CALCIUM
     Dosage: 2.5 MEQ/H, UNK
     Route: 041
  6. FUROSEMIDE. [Concomitant]
     Active Substance: FUROSEMIDE
     Indication: OEDEMA
     Dosage: 20 MG, QD
     Route: 048
     Dates: start: 20150531
  7. DENOTAS [Concomitant]
     Active Substance: CALCIUM CARBONATE\CHOLECALCIFEROL\MAGNESIUM CARBONATE
     Indication: PROPHYLAXIS
     Dosage: 2 DF, QD
     Route: 048
     Dates: start: 20150528
  8. RANMARK [Suspect]
     Active Substance: DENOSUMAB
     Indication: METASTASES TO BONE
     Dosage: 120 MG, UNK
     Route: 058
     Dates: start: 20150529, end: 20150529
  9. CALCIUM [Concomitant]
     Active Substance: CALCIUM
     Dosage: 610 MG, QD
  10. VITAMIN D [Concomitant]
     Active Substance: CHOLECALCIFEROL
     Dosage: 400 IU, QD

REACTIONS (3)
  - Hypophosphataemia [Unknown]
  - Hypocalcaemia [Recovering/Resolving]
  - Death [Fatal]

NARRATIVE: CASE EVENT DATE: 20150604
